FAERS Safety Report 8463885-8 (Version None)
Quarter: 2012Q2

REPORT INFORMATION
  Report Type: 
  Country: None (occurrence: None)
  Receive Date: 20120625
  Receipt Date: 20120529
  Transmission Date: 20120825
  Serious: Yes (Other)
  Sender: FDA-Public Use
  Company Number: US-PFIZER INC-2012129936

PATIENT
  Age: 65 Year
  Sex: Female
  Weight: 61 kg

DRUGS (6)
  1. ALENDRONATE SODIUM [Concomitant]
     Indication: PRODUCT USED FOR UNKNOWN INDICATION
     Dosage: UNK
  2. CIMZIA [Concomitant]
     Indication: PRODUCT USED FOR UNKNOWN INDICATION
     Dosage: UNK
  3. GABAPENTIN [Suspect]
     Dosage: THREE CAPSULES THREE TIMES A DAY
     Route: 048
  4. LEFLUNOMIDE [Concomitant]
     Indication: PRODUCT USED FOR UNKNOWN INDICATION
     Dosage: UNK
  5. GABAPENTIN [Suspect]
     Indication: SPINAL PAIN
     Dosage: ONE CAPSULE THREE TIMES A DAY TO 2 CAPSULES THREE TIMES A DAY
     Route: 048
     Dates: start: 20120415
  6. DICLOFENAC [Concomitant]
     Indication: PRODUCT USED FOR UNKNOWN INDICATION
     Dosage: UNK

REACTIONS (5)
  - GENERALISED ERYTHEMA [None]
  - PRURITUS GENERALISED [None]
  - URTICARIA [None]
  - SWELLING FACE [None]
  - LIP SWELLING [None]
